FAERS Safety Report 5587844-8 (Version None)
Quarter: 2007Q4

REPORT INFORMATION
  Report Type: 
  Country: None (occurrence: None)
  Receive Date: 20071211
  Receipt Date: 20070824
  Transmission Date: 20080405
  Serious: No
  Sender: FDA-Public Use
  Company Number: 002#2#2007-00180

PATIENT
  Age: 79 Year
  Sex: Female

DRUGS (6)
  1. NEUPRO [Suspect]
     Indication: PARKINSON'S DISEASE
     Dosage: 4MG/24H,1 IN 1 D,TRANSDERMAL ; 2MG/24H,1 IN 1 D,TRANSDERMAL
     Route: 062
     Dates: start: 20070819, end: 20070824
  2. GLIPIZIDE [Concomitant]
  3. LACSOLENE [Concomitant]
  4. K+ [Concomitant]
  5. PAXIL [Concomitant]
  6. AMOXAPINE [Concomitant]

REACTIONS (2)
  - DRUG TOLERANCE [None]
  - HALLUCINATION [None]
